FAERS Safety Report 8768205 (Version 1)
Quarter: 2012Q4

REPORT INFORMATION
  Report Type: 
  Country: DE (occurrence: DE)
  Receive Date: 20120904
  Receipt Date: 20120904
  Transmission Date: 20130627
  Serious: Yes (Other)
  Sender: FDA-Public Use
  Company Number: DE-JNJFOC-20120901018

PATIENT

DRUGS (5)
  1. XARELTO [Suspect]
     Indication: PRODUCT USED FOR UNKNOWN INDICATION
     Route: 048
  2. MIRTAZAPIN [Concomitant]
  3. CITALOPRAM [Concomitant]
  4. EMSELEX [Concomitant]
  5. ZONEGRAN [Concomitant]

REACTIONS (1)
  - Convulsion [Unknown]
